FAERS Safety Report 5955639-9 (Version None)
Quarter: 2008Q4

REPORT INFORMATION
  Report Type: 
  Country: None (occurrence: None)
  Receive Date: 20081117
  Receipt Date: 20081106
  Transmission Date: 20090506
  Serious: Yes (Other)
  Sender: FDA-Public Use
  Company Number: US-PFIZER INC-2008094369

PATIENT
  Sex: Female
  Weight: 62.6 kg

DRUGS (3)
  1. LIPITOR [Suspect]
     Indication: BLOOD CHOLESTEROL INCREASED
  2. DILTIAZEM HCL [Concomitant]
  3. SYNTHROID [Concomitant]

REACTIONS (8)
  - ANKLE FRACTURE [None]
  - BODY HEIGHT DECREASED [None]
  - MUSCLE INJURY [None]
  - MUSCLE SPASMS [None]
  - MYALGIA [None]
  - NERVE INJURY [None]
  - PAIN [None]
  - SYNCOPE [None]
